FAERS Safety Report 11466664 (Version 1)
Quarter: 2015Q3

REPORT INFORMATION
  Report Type: Spontaneous
  Country: US (occurrence: US)
  Receive Date: 20150907
  Receipt Date: 20150907
  Transmission Date: 20151125
  Serious: Yes (Other)
  Sender: FDA-Public Use
  Company Number: US-TAKEDA-2014TUS014484

PATIENT

DRUGS (5)
  1. PRANDIN                            /01393601/ [Concomitant]
     Dosage: 0.5 MG/INTERMITTENT USE, UNK
     Dates: start: 20090204, end: 2011
  2. ACTOS [Suspect]
     Active Substance: PIOGLITAZONE HYDROCHLORIDE
     Indication: TYPE 2 DIABETES MELLITUS
     Dosage: UNK
     Route: 048
     Dates: start: 20020226, end: 20110907
  3. PRANDIN                            /01393601/ [Concomitant]
     Dosage: 0.5 MG/INTERMITTENT USE, UNK
     Dates: start: 2002, end: 20090204
  4. METFORMIN [Concomitant]
     Active Substance: METFORMIN HYDROCHLORIDE
     Dosage: 500 MG, BID
     Dates: start: 201103
  5. JANUVIA [Concomitant]
     Active Substance: SITAGLIPTIN PHOSPHATE
     Dosage: 100 MG, UNK
     Dates: start: 20101229, end: 201106

REACTIONS (1)
  - Bladder cancer [Not Recovered/Not Resolved]

NARRATIVE: CASE EVENT DATE: 20130923
